FAERS Safety Report 9211055 (Version 2)
Quarter: 2013Q2

REPORT INFORMATION
  Report Type: Report from Study
  Country: PT (occurrence: PT)
  Receive Date: 20130404
  Receipt Date: 20130409
  Transmission Date: 20140414
  Serious: Yes (Other)
  Sender: FDA-Public Use
  Company Number: PT-ABBOTT-13P-130-1072139-00

PATIENT
  Age: 57 Year
  Sex: Male

DRUGS (3)
  1. KALETRA [Suspect]
     Indication: HIV INFECTION
  2. VIREAD [Concomitant]
     Indication: HIV INFECTION
  3. EMTRIVA [Concomitant]
     Indication: PRODUCT USED FOR UNKNOWN INDICATION

REACTIONS (1)
  - Kaposi^s sarcoma [Unknown]
